FAERS Safety Report 6134493-9 (Version None)
Quarter: 2009Q1

REPORT INFORMATION
  Report Type: 
  Country: None (occurrence: None)
  Receive Date: 20090327
  Receipt Date: 20090323
  Transmission Date: 20090719
  Serious: Yes (Death)
  Sender: FDA-Public Use
  Company Number: US-JNJFOC-20090306542

PATIENT
  Sex: Female

DRUGS (1)
  1. SPORANOX [Suspect]
     Indication: DRUG USE FOR UNKNOWN INDICATION
     Route: 065

REACTIONS (2)
  - LEUKAEMIA [None]
  - MALIGNANT NEOPLASM PROGRESSION [None]
